FAERS Safety Report 7776305-3 (Version None)
Quarter: 2011Q3

REPORT INFORMATION
  Report Type: 
  Country: None (occurrence: None)
  Receive Date: 20110921
  Receipt Date: 20110921
  Transmission Date: 20111222
  Serious: Yes (Other)
  Sender: FDA-Public Use
  Company Number: None

PATIENT
  Sex: Female

DRUGS (1)
  1. FORTEO [Suspect]
     Indication: BONE DISORDER
     Dosage: 20 MCG ONCE ONLY SUB-Q
     Route: 058
     Dates: start: 20110815, end: 20110820

REACTIONS (4)
  - PAIN IN JAW [None]
  - HEADACHE [None]
  - PAIN [None]
  - MASS [None]
